FAERS Safety Report 22627196 (Version 1)
Quarter: 2023Q2

REPORT INFORMATION
  Report Type: Spontaneous
  Country: US (occurrence: None)
  Receive Date: 20230622
  Receipt Date: 20230622
  Transmission Date: 20230722
  Serious: No
  Sender: FDA-Public Use
  Company Number: 2023A143084

PATIENT
  Age: 32701 Day
  Sex: Female

DRUGS (6)
  1. BRILINTA [Suspect]
     Active Substance: TICAGRELOR
     Route: 048
     Dates: end: 20230716
  2. BRILINTA [Suspect]
     Active Substance: TICAGRELOR
     Route: 048
  3. ZETIA [Concomitant]
     Active Substance: EZETIMIBE
  4. ASPIRIN [Concomitant]
     Active Substance: ASPIRIN
     Dosage: 40 MG
  5. METOPROLOL [Concomitant]
     Active Substance: METOPROLOL
     Dosage: 40 MG
  6. EZETIMIBE [Concomitant]
     Active Substance: EZETIMIBE
     Dosage: 40 MG

REACTIONS (5)
  - Lacrimation increased [Unknown]
  - Myopia [Unknown]
  - Blood cholesterol increased [Unknown]
  - Vaginal haemorrhage [Unknown]
  - Off label use [Unknown]

NARRATIVE: CASE EVENT DATE: 20230612
